FAERS Safety Report 5416295-1 (Version None)
Quarter: 2007Q3

REPORT INFORMATION
  Report Type: 
  Country: None (occurrence: None)
  Receive Date: 20070718
  Receipt Date: 20070307
  Transmission Date: 20080115
  Serious: Yes (Hospitalization, Other)
  Sender: FDA-Public Use
  Company Number: 2007018007

PATIENT
  Age: 64 Year
  Sex: Female

DRUGS (1)
  1. CELEBREX [Suspect]
     Indication: BACK PAIN
     Dosage: (200 MG,AS NECESSARY),ORAL
     Route: 048
     Dates: start: 20030101

REACTIONS (2)
  - ANXIETY [None]
  - MYOCARDIAL INFARCTION [None]
